FAERS Safety Report 8179947-9 (Version None)
Quarter: 2012Q1

REPORT INFORMATION
  Report Type: 
  Country: None (occurrence: None)
  Receive Date: 20120302
  Receipt Date: 20120224
  Transmission Date: 20120608
  Serious: Yes (Other)
  Sender: FDA-Public Use
  Company Number: US-BAYER-2012-019436

PATIENT
  Age: 44 Year
  Sex: Female
  Weight: 76 kg

DRUGS (8)
  1. CYMBALTA [Concomitant]
  2. OXYCONTIN [Concomitant]
  3. PERCOCET [Concomitant]
  4. RID 1-2-3 SYSTEM [Suspect]
     Indication: LICE INFESTATION
     Dosage: OTHER FREQUENCY
     Route: 061
     Dates: start: 20120201
  5. LYRICA [Concomitant]
  6. AMLODIPINE [Concomitant]
  7. RID 1-2-3 SYSTEM [Suspect]
  8. CREAM (UNSPECIFIED) [Concomitant]
     Indication: TINEA INFECTION

REACTIONS (5)
  - UNEVALUABLE EVENT [None]
  - WEIGHT INCREASED [None]
  - EPISTAXIS [None]
  - FORMICATION [None]
  - FEELING ABNORMAL [None]
